FAERS Safety Report 10146962 (Version 1)
Quarter: 2014Q2

REPORT INFORMATION
  Report Type: Spontaneous
  Country: US (occurrence: None)
  Receive Date: 20140430
  Receipt Date: 20140430
  Transmission Date: 20141212
  Serious: Yes (Hospitalization)
  Sender: FDA-Public Use
  Company Number: None

PATIENT
  Age: 48 Year
  Sex: Female

DRUGS (4)
  1. TYLENOL # 3 [Suspect]
     Indication: PAIN
     Dosage: TEYLENOL #3 OVERDOSE [8, PRN, PO?
     Route: 048
     Dates: end: 20140116
  2. FERROUS SULFATE [Concomitant]
  3. MULTIVITAMIN [Concomitant]
  4. ACETAMINOPHEN-CODEINE [Concomitant]

REACTIONS (8)
  - Blood pressure increased [None]
  - Blood alcohol increased [None]
  - Liver function test abnormal [None]
  - Drug screen positive [None]
  - Fall [None]
  - Skull fracture [None]
  - Muscle disorder [None]
  - Eye swelling [None]
